FAERS Safety Report 4397791-5 (Version None)
Quarter: 2004Q3

REPORT INFORMATION
  Report Type: 
  Country: None (occurrence: None)
  Receive Date: 20040713
  Receipt Date: 20040628
  Transmission Date: 20050211
  Serious: Yes (Hospitalization)
  Sender: FDA-Public Use
  Company Number: 194013

PATIENT
  Age: 30 Year
  Sex: Female

DRUGS (7)
  1. AVONEX [Suspect]
     Indication: MULTIPLE SCLEROSIS
     Dosage: 30 MCG QW IM
     Route: 030
     Dates: start: 20021107, end: 20040101
  2. AVONEX [Suspect]
     Indication: MULTIPLE SCLEROSIS
     Dosage: 30 MCG QW IM
     Route: 030
     Dates: start: 20040201
  3. FOLIC ACID [Concomitant]
  4. MICRONOR [Concomitant]
  5. NEURONTIN [Concomitant]
  6. VITAMIN C [Concomitant]
  7. MULTI-VITAMINS [Concomitant]

REACTIONS (9)
  - DYSPNOEA [None]
  - EPIGLOTTITIS [None]
  - HYPERTENSION [None]
  - POST PROCEDURAL COMPLICATION [None]
  - REFUSAL OF TREATMENT BY PATIENT [None]
  - RESPIRATORY FAILURE [None]
  - STRIDOR [None]
  - SWELLING [None]
  - VOCAL CORD PARALYSIS [None]
